FAERS Safety Report 17259160 (Version 3)
Quarter: 2020Q2

REPORT INFORMATION
  Report Type: Report from Study
  Country: JP (occurrence: JP)
  Receive Date: 20200110
  Receipt Date: 20200409
  Transmission Date: 20200713
  Serious: Yes (Hospitalization, Other)
  Sender: FDA-Public Use
  Company Number: JP-EISAI MEDICAL RESEARCH-EC-2020-068309

PATIENT
  Age: 72 Year
  Sex: Male
  Weight: 61 kg

DRUGS (10)
  1. LENVIMA [Suspect]
     Active Substance: LENVATINIB
     Dosage: 5 DAYS ON/2 DAYS OFF REGIMEN.
     Route: 048
     Dates: start: 20190717, end: 20191014
  2. ISOTONIC SODIUM CHLORIDE SOLUTION [Concomitant]
     Active Substance: SODIUM CHLORIDE
  3. LENVIMA [Suspect]
     Active Substance: LENVATINIB
     Indication: HEPATOCELLULAR CARCINOMA
     Route: 048
     Dates: start: 20181106, end: 20181223
  4. LENVIMA [Suspect]
     Active Substance: LENVATINIB
     Dosage: 5 DAYS ON/2 DAYS OFF REGIMEN
     Route: 048
     Dates: start: 20181224, end: 20190309
  5. HANGEKOBOKUTO [Concomitant]
     Active Substance: HERBALS
  6. LOPERAMIDE HYDROCHLORIDE. [Concomitant]
     Active Substance: LOPERAMIDE HYDROCHLORIDE
  7. LENVIMA [Suspect]
     Active Substance: LENVATINIB
     Dosage: 5 DAYS ON/2 DAYS OFF REGIMEN.
     Route: 048
     Dates: start: 20191030, end: 20191115
  8. HIRUDOID [Concomitant]
     Active Substance: GLYCOSAMINOGLYCANS
  9. SOLDEM 1 [Concomitant]
     Active Substance: DEXTROSE\SODIUM CHLORIDE\SODIUM LACTATE
  10. LENVIMA [Suspect]
     Active Substance: LENVATINIB
     Dosage: 4 DAYS ON/3 DAYS OFF REGIMEN.
     Route: 048
     Dates: start: 20190703, end: 20190716

REACTIONS (3)
  - Malignant neoplasm progression [Not Recovered/Not Resolved]
  - Acute kidney injury [Recovering/Resolving]
  - Alpha 1 foetoprotein increased [Not Recovered/Not Resolved]

NARRATIVE: CASE EVENT DATE: 20190310
